FAERS Safety Report 15192245 (Version 2)
Quarter: 2018Q3

REPORT INFORMATION
  Report Type: Spontaneous
  Country: US (occurrence: US)
  Receive Date: 20180724
  Receipt Date: 20180731
  Transmission Date: 20181010
  Serious: Yes (Death, Hospitalization, Other)
  Sender: FDA-Public Use
  Company Number: US-SHIRE-US201827203

PATIENT
  Age: 25 Year
  Sex: Female
  Weight: 49.89 kg

DRUGS (1)
  1. XIIDRA [Suspect]
     Active Substance: LIFITEGRAST
     Indication: DRY EYE
     Dosage: UNK
     Route: 047
     Dates: start: 201802

REACTIONS (3)
  - Epstein-Barr virus infection [Fatal]
  - Brain herniation [Fatal]
  - Encephalitis [Fatal]

NARRATIVE: CASE EVENT DATE: 2018
